FAERS Safety Report 19484158 (Version 2)
Quarter: 2021Q3

REPORT INFORMATION
  Report Type: Spontaneous
  Country: GB (occurrence: GB)
  Receive Date: 20210701
  Receipt Date: 20210818
  Transmission Date: 20211014
  Serious: Yes (Other)
  Sender: FDA-Public Use
  Company Number: NVSC2021GB144038

PATIENT
  Sex: Male

DRUGS (1)
  1. VOLTAROL RETARD [Suspect]
     Active Substance: DICLOFENAC
     Indication: SPINAL COMPRESSION FRACTURE
     Dosage: 100 MG, AS NEEDED
     Route: 065
     Dates: start: 1997

REACTIONS (8)
  - Internal haemorrhage [Unknown]
  - Prescription drug used without a prescription [Unknown]
  - Blood pressure abnormal [Unknown]
  - Pneumothorax [Recovered/Resolved]
  - Drug ineffective [Unknown]
  - Dementia [Not Recovered/Not Resolved]
  - Pneumonia [Not Recovered/Not Resolved]
  - Product dispensing error [Unknown]

NARRATIVE: CASE EVENT DATE: 1988
